FAERS Safety Report 5584525-1 (Version None)
Quarter: 2008Q1

REPORT INFORMATION
  Report Type: 
  Country: None (occurrence: None)
  Receive Date: 20080108
  Receipt Date: 20071231
  Transmission Date: 20080703
  Serious: Yes (Other)
  Sender: FDA-Public Use
  Company Number: US-ELI_LILLY_AND_COMPANY-US200801000059

PATIENT
  Sex: Male
  Weight: 134.69 kg

DRUGS (8)
  1. BYETTA [Suspect]
     Dosage: 5 UG, 2/D
     Route: 058
     Dates: start: 20070901, end: 20071001
  2. BYETTA [Suspect]
     Dosage: 10 UG, 2/D
     Route: 058
     Dates: start: 20071001
  3. METFORMIN HCL [Concomitant]
     Dosage: UNK, UNKNOWN
     Dates: end: 20071219
  4. VYTORIN [Concomitant]
     Dosage: UNK, UNKNOWN
     Dates: start: 20060101
  5. PLAVIX [Concomitant]
     Indication: CARDIAC DISORDER
     Dosage: UNK, UNKNOWN
  6. ATENOLOL [Concomitant]
     Indication: HYPERTENSION
     Dosage: UNK, UNKNOWN
  7. DIURETICS [Concomitant]
     Indication: HYPERTENSION
     Dosage: UNK, UNKNOWN
  8. PAXIL [Concomitant]
     Indication: DEPRESSION
     Dosage: UNK, UNKNOWN

REACTIONS (6)
  - APATHY [None]
  - CHEST PAIN [None]
  - HEART RATE ABNORMAL [None]
  - NAUSEA [None]
  - PAIN IN JAW [None]
  - WEIGHT DECREASED [None]
